FAERS Safety Report 14926855 (Version 1)
Quarter: 2018Q2

REPORT INFORMATION
  Report Type: Spontaneous
  Country: FR (occurrence: FR)
  Receive Date: 20180523
  Receipt Date: 20180523
  Transmission Date: 20180711
  Serious: Yes (Hospitalization, Other)
  Sender: FDA-Public Use
  Company Number: FR-MERCK KGAA-2048280

PATIENT
  Age: 68 Year
  Sex: Female
  Weight: 69.5 kg

DRUGS (4)
  1. NOVOTHYROX [Suspect]
     Active Substance: LEVOTHYROXINE SODIUM
     Indication: HYPOTHYROIDISM
     Route: 048
     Dates: start: 20170501, end: 20170829
  2. MEDIATOR [Concomitant]
     Active Substance: BENFLUOREX
  3. PREVISCAN (PENTOXIFYLLINE) [Concomitant]
     Active Substance: PENTOXIFYLLINE
  4. PRADAXA [Concomitant]
     Active Substance: DABIGATRAN ETEXILATE MESYLATE

REACTIONS (23)
  - Fatigue [Recovered/Resolved]
  - Alopecia [Recovered/Resolved]
  - Nervousness [Recovered/Resolved]
  - Asthenia [Recovered/Resolved]
  - Decreased interest [Recovered/Resolved]
  - Malnutrition [Recovered/Resolved]
  - Vomiting [Recovered/Resolved]
  - Insomnia [Recovered/Resolved]
  - Abdominal pain [Recovered/Resolved]
  - Arthralgia [Recovered/Resolved]
  - Uterine haemorrhage [Recovered/Resolved]
  - Dehydration [Recovered/Resolved]
  - Dysphonia [Recovered/Resolved]
  - Muscle spasms [Recovered/Resolved]
  - Gastrointestinal carcinoma [Recovered/Resolved]
  - Abnormal behaviour [Recovered/Resolved]
  - Gait inability [Recovered/Resolved]
  - Loss of personal independence in daily activities [Recovered/Resolved]
  - Thirst decreased [Recovered/Resolved]
  - Decreased appetite [Recovered/Resolved]
  - Peripheral swelling [Recovered/Resolved]
  - Dizziness [Recovered/Resolved]
  - Nausea [Recovered/Resolved]

NARRATIVE: CASE EVENT DATE: 2017
